FAERS Safety Report 6191143-3 (Version None)
Quarter: 2009Q2

REPORT INFORMATION
  Report Type: 
  Country: None (occurrence: None)
  Receive Date: 20090515
  Receipt Date: 20090512
  Transmission Date: 20091009
  Serious: Yes (Death)
  Sender: FDA-Public Use
  Company Number: JP-JNJFOC-20090401817

PATIENT
  Age: 72 Year
  Sex: Male

DRUGS (10)
  1. DUROPTEP [Suspect]
     Indication: CANCER PAIN
     Route: 062
  2. HALCION [Suspect]
     Indication: DRUG USE FOR UNKNOWN INDICATION
     Dosage: PERORAL MEDICINE
     Route: 048
  3. LOBU [Concomitant]
     Indication: DRUG USE FOR UNKNOWN INDICATION
     Route: 048
  4. MUCOSTA [Concomitant]
     Indication: DRUG USE FOR UNKNOWN INDICATION
     Route: 048
  5. TAKEPRON [Concomitant]
     Indication: DRUG USE FOR UNKNOWN INDICATION
     Route: 048
  6. URSO 250 [Concomitant]
     Indication: DRUG USE FOR UNKNOWN INDICATION
     Route: 048
  7. SENNOSIDE [Concomitant]
     Indication: DRUG USE FOR UNKNOWN INDICATION
     Dosage: PERORAL MEDICINE
     Route: 048
  8. TOUGHMAC E [Concomitant]
     Indication: DRUG USE FOR UNKNOWN INDICATION
     Route: 048
  9. MIYA BM [Concomitant]
     Indication: DRUG USE FOR UNKNOWN INDICATION
     Dosage: FINE GRAIN
     Route: 048
  10. OXYCODONE HYDROCHLORIDE HYDRATE [Concomitant]
     Indication: DRUG USE FOR UNKNOWN INDICATION

REACTIONS (3)
  - CATHETER SITE PAIN [None]
  - MALIGNANT NEOPLASM PROGRESSION [None]
  - SOMNOLENCE [None]
